FAERS Safety Report 9421810 (Version 2)
Quarter: 2013Q3

REPORT INFORMATION
  Report Type: Report from Study
  Country: NL (occurrence: NL)
  Receive Date: 20130726
  Receipt Date: 20130808
  Transmission Date: 20140515
  Serious: Yes (Hospitalization, Other)
  Sender: FDA-Public Use
  Company Number: NL-BRISTOL-MYERS SQUIBB COMPANY-19114917

PATIENT
  Age: 57 Year
  Sex: Male

DRUGS (13)
  1. BLINDED: IPILIMUMAB [Suspect]
     Indication: NON-SMALL CELL LUNG CANCER
     Dosage: INT26JUN13
     Route: 042
     Dates: start: 20130626
  2. CARBOPLATIN [Suspect]
     Indication: NON-SMALL CELL LUNG CANCER
     Dosage: INT 26JUN13
     Route: 042
     Dates: start: 20130508
  3. PACLITAXEL [Suspect]
     Indication: NON-SMALL CELL LUNG CANCER
     Dosage: INT 26JUN13
     Route: 042
     Dates: start: 20130508
  4. BLINDED: PLACEBO [Suspect]
     Indication: NON-SMALL CELL LUNG CANCER
     Dosage: INT 26JUN13
     Route: 042
     Dates: start: 20130626
  5. LANTUS [Concomitant]
     Dates: start: 2011
  6. METFORMIN [Concomitant]
     Dates: start: 2004, end: 20130715
  7. TOLBUTAMIDE [Concomitant]
     Dates: start: 2004, end: 20130626
  8. SIMVASTATIN [Concomitant]
     Dates: start: 2003
  9. METOPROLOL [Concomitant]
     Dates: start: 2003, end: 20130715
  10. ARCOXIA [Concomitant]
     Dates: start: 2013, end: 20130705
  11. NOVORAPID [Concomitant]
     Dates: start: 20130514
  12. HYZAAR [Concomitant]
     Dates: start: 20130706, end: 20130715
  13. OMEPRAZOLE [Concomitant]
     Dates: start: 201304

REACTIONS (2)
  - Renal failure acute [Recovered/Resolved]
  - Diarrhoea [Recovered/Resolved]
